FAERS Safety Report 4642794-6 (Version None)
Quarter: 2005Q2

REPORT INFORMATION
  Report Type: 
  Country: None (occurrence: None)
  Receive Date: 20050421
  Receipt Date: 20050411
  Transmission Date: 20051028
  Serious: Yes (Death, Other)
  Sender: FDA-Public Use
  Company Number: PHFR2005GB01448

PATIENT
  Sex: Male

DRUGS (7)
  1. CARBAMAZEPINE [Suspect]
     Dosage: 200 MG, BID, ORAL
     Route: 048
  2. SALBUTAMOL SANDOZ (NGX) (SALBUTAMOL) [Suspect]
  3. ATROVENT [Suspect]
  4. OXYGEN (OXYGEN) [Suspect]
  5. SALMETEROL (SALMETEROL) [Suspect]
  6. CARBOCISTEINE (CARBOCISTEINE) [Suspect]
  7. FRUSENE (FUROSEMIDE, TRIAMTERENE) [Suspect]
     Dosage: 40 MG/DAY

REACTIONS (2)
  - CHRONIC OBSTRUCTIVE PULMONARY DISEASE [None]
  - PNEUMONIA [None]
